FAERS Safety Report 21520701 (Version 1)
Quarter: 2022Q4

REPORT INFORMATION
  Report Type: Spontaneous
  Country: CN (occurrence: CN)
  Receive Date: 20221028
  Receipt Date: 20221028
  Transmission Date: 20230113
  Serious: Yes (Life-Threatening, Other)
  Sender: FDA-Public Use
  Company Number: CN-PFIZER INC-PV202200091811

PATIENT
  Age: 26 Year
  Sex: Female

DRUGS (4)
  1. CYTARABINE [Suspect]
     Active Substance: CYTARABINE
     Indication: Acute myeloid leukaemia
     Dosage: 0.16 G (+0.9% SODIUM CHLORIDE INJECTION 250ML), 1X/DAY
     Route: 041
     Dates: start: 20220915, end: 20220920
  2. IDARUBICIN HYDROCHLORIDE [Suspect]
     Active Substance: IDARUBICIN HYDROCHLORIDE
     Indication: Acute myeloid leukaemia
     Dosage: 20 MG (0.9% SODIUM CHLORIDE INJECTION 100ML), 1X/DAY
     Route: 041
     Dates: start: 20220915, end: 20220917
  3. SODIUM CHLORIDE [Concomitant]
     Active Substance: SODIUM CHLORIDE
     Indication: Vehicle solution use
     Dosage: 250 ML, 1X/DAY (FOR CYTARABINE)
     Dates: start: 20220915, end: 20220920
  4. SODIUM CHLORIDE [Concomitant]
     Active Substance: SODIUM CHLORIDE
     Dosage: 100 ML, 1X/DAY (FOR IDARUBICIN HCL)
     Dates: start: 20220915, end: 20220917

REACTIONS (5)
  - Myelosuppression [Recovering/Resolving]
  - Pyrexia [Unknown]
  - Blood pressure decreased [Unknown]
  - Temperature intolerance [Unknown]
  - Chills [Unknown]

NARRATIVE: CASE EVENT DATE: 20220929
